FAERS Safety Report 7621388-4 (Version None)
Quarter: 2011Q3

REPORT INFORMATION
  Report Type: 
  Country: None (occurrence: None)
  Receive Date: 20110719
  Receipt Date: 20110712
  Transmission Date: 20111222
  Serious: Yes (Hospitalization, Congenital Anomaly, Other)
  Sender: FDA-Public Use
  Company Number: US-PFIZER INC-2011158478

PATIENT
  Sex: Male

DRUGS (6)
  1. METHYLDOPA [Concomitant]
     Indication: HYPERTENSION
     Dosage: 500 MG, 3X/DAY
     Route: 064
  2. LISINOPRIL AND HYDROCHLOROTHIAZIDE [Concomitant]
     Dosage: 20/12.5 MG EVERY DAY
     Route: 064
  3. ZYPREXA [Concomitant]
     Indication: DEPRESSION
     Dosage: 10 MG EVERY NIGHT
     Route: 064
  4. CLONIDINE [Concomitant]
     Dosage: 0.2 MG, 2X/DAY
     Route: 064
  5. EFFEXOR XR [Suspect]
     Indication: DEPRESSION
     Dosage: 150 MG EVERY DAY
     Route: 064
     Dates: start: 20070101
  6. NOVOLOG [Concomitant]
     Indication: HYPERGLYCAEMIA
     Dosage: UNK
     Route: 064
     Dates: start: 20071127

REACTIONS (6)
  - PERINEAL FISTULA [None]
  - FOETAL ARRHYTHMIA [None]
  - ANAL ATRESIA [None]
  - TALIPES [None]
  - PHIMOSIS [None]
  - MATERNAL EXPOSURE DURING PREGNANCY [None]
